FAERS Safety Report 25124851 (Version 1)
Quarter: 2025Q1

REPORT INFORMATION
  Report Type: Spontaneous
  Country: KR (occurrence: KR)
  Receive Date: 20250326
  Receipt Date: 20250326
  Transmission Date: 20250409
  Serious: Yes (Other)
  Sender: NOVARTIS
  Company Number: KR-002147023-NVSC2025KR047813

PATIENT
  Age: 81 Year
  Sex: Male

DRUGS (5)
  1. BEOVU [Suspect]
     Active Substance: BROLUCIZUMAB-DBLL
     Indication: Polypoidal choroidal vasculopathy
     Route: 065
     Dates: start: 20211229
  2. BEOVU [Suspect]
     Active Substance: BROLUCIZUMAB-DBLL
     Route: 065
     Dates: start: 20220302
  3. BEOVU [Suspect]
     Active Substance: BROLUCIZUMAB-DBLL
     Route: 065
     Dates: start: 20220622
  4. BEOVU [Suspect]
     Active Substance: BROLUCIZUMAB-DBLL
     Route: 065
     Dates: start: 20220826
  5. BEOVU [Suspect]
     Active Substance: BROLUCIZUMAB-DBLL
     Route: 065
     Dates: start: 20221102

REACTIONS (5)
  - Uveitis [Recovered/Resolved]
  - Anterior chamber cell [Unknown]
  - Keratic precipitates [Unknown]
  - Vitreous haze [Unknown]
  - Visual impairment [Unknown]

NARRATIVE: CASE EVENT DATE: 20220112
